FAERS Safety Report 9805833 (Version 2)
Quarter: 2014Q1

REPORT INFORMATION
  Report Type: Report from Study
  Country: KE (occurrence: KE)
  Receive Date: 20140109
  Receipt Date: 20140109
  Transmission Date: 20141002
  Serious: Yes (Death)
  Sender: FDA-Public Use
  Company Number: PHHY2012KE041056

PATIENT
  Age: 42 Year
  Sex: Male

DRUGS (3)
  1. GLIVEC [Suspect]
     Indication: CHRONIC MYELOID LEUKAEMIA
     Dosage: 400 MG, DAILY
     Dates: start: 20071127
  2. GLIVEC [Suspect]
     Dosage: 600 MG, UNK
  3. GLIVEC [Suspect]
     Dosage: 800 UNK, UNK

REACTIONS (2)
  - Death [Fatal]
  - White blood cell count increased [Unknown]
